FAERS Safety Report 9106528 (Version 1)
Quarter: 2013Q1

REPORT INFORMATION
  Report Type: Spontaneous
  Country: GB (occurrence: GB)
  Receive Date: 20130221
  Receipt Date: 20130221
  Transmission Date: 20140127
  Serious: Yes (Other)
  Sender: FDA-Public Use
  Company Number: GB-PFIZER INC-2013063303

PATIENT
  Age: 46 Year
  Sex: Female

DRUGS (3)
  1. IBUPROFEN [Suspect]
     Indication: PERIARTHRITIS
     Dosage: 400 MG, 3X/DAY
     Route: 048
     Dates: start: 201211, end: 20130130
  2. NAPROXEN [Suspect]
     Indication: PERIARTHRITIS
     Dosage: 500 MG, 2X/DAY
     Route: 048
     Dates: start: 20130201, end: 20130202
  3. PARACETAMOL [Concomitant]
     Indication: PERIARTHRITIS
     Dosage: 1 G, 4X/DAY
     Route: 048
     Dates: start: 201211

REACTIONS (2)
  - Tremor [Not Recovered/Not Resolved]
  - Discomfort [Not Recovered/Not Resolved]
